FAERS Safety Report 23273337 (Version 1)
Quarter: 2023Q4

REPORT INFORMATION
  Report Type: Spontaneous
  Country: US (occurrence: US)
  Receive Date: 20231207
  Receipt Date: 20231207
  Transmission Date: 20240110
  Serious: Yes (Hospitalization)
  Sender: FDA-Public Use
  Company Number: US-TEVA-VS-3134251

PATIENT
  Age: 56 Year

DRUGS (11)
  1. PEMETREXED [Suspect]
     Active Substance: PEMETREXED
     Indication: Lung adenocarcinoma
     Dosage: ADDITIONAL DOSE WITH CARBOPLATIN
     Route: 065
     Dates: start: 202010
  2. PEMETREXED [Suspect]
     Active Substance: PEMETREXED
     Indication: Lung adenocarcinoma
     Dosage: 5TH MAINTENANCE DOSE WITH PEMBROLIZUMAB
     Route: 065
     Dates: start: 202009
  3. PEMETREXED [Suspect]
     Active Substance: PEMETREXED
     Indication: Lung adenocarcinoma
     Dosage: COMPLETED 4 CYCLES OF COMBINATION THERAPY WITH PEMBROLIZUMAB AND CARBOPLATIN
     Route: 065
     Dates: start: 202006, end: 202008
  4. AMLODIPINE [Suspect]
     Active Substance: AMLODIPINE BESYLATE
     Indication: Hypertension
     Route: 065
  5. PEMBROLIZUMAB [Suspect]
     Active Substance: PEMBROLIZUMAB
     Indication: Lung adenocarcinoma
     Dosage: COMPLETED 4 CYCLES OF COMBINATION THERAPY WITH PEMETREXED AND CARBOPLATIN
     Route: 065
     Dates: start: 202006, end: 202008
  6. PEMBROLIZUMAB [Suspect]
     Active Substance: PEMBROLIZUMAB
     Indication: Lung adenocarcinoma
     Dosage: 5TH MAINTENANCE DOSE WITH PEMETREXED
     Route: 065
     Dates: start: 202009
  7. VANCOMYCIN [Suspect]
     Active Substance: VANCOMYCIN
     Indication: Clostridium difficile colitis
     Route: 065
     Dates: start: 2020
  8. VITAMIN B12 [Concomitant]
     Active Substance: CYANOCOBALAMIN
     Route: 065
  9. CARBOPLATIN [Concomitant]
     Active Substance: CARBOPLATIN
     Indication: Lung adenocarcinoma
     Dosage: COMPLETED 4 CYCLES OF COMBINATION THERAPY WITH PEMBROLIZUMAB AND PEMETREXED
     Route: 065
     Dates: start: 202006, end: 202008
  10. CARBOPLATIN [Concomitant]
     Active Substance: CARBOPLATIN
     Indication: Lung adenocarcinoma
     Dosage: ADDITIONAL DOSE WITH PEMETREXED
     Route: 065
     Dates: start: 202010
  11. FOLIC ACID [Concomitant]
     Active Substance: FOLIC ACID
     Route: 065

REACTIONS (3)
  - Thrombotic thrombocytopenic purpura [Recovered/Resolved]
  - Haemolytic anaemia [Unknown]
  - Mental status changes [Unknown]

NARRATIVE: CASE EVENT DATE: 20200101
